FAERS Safety Report 7893746-4 (Version None)
Quarter: 2011Q4

REPORT INFORMATION
  Report Type: 
  Country: None (occurrence: None)
  Receive Date: 20111104
  Receipt Date: 20111028
  Transmission Date: 20120403
  Serious: Yes (Other)
  Sender: FDA-Public Use
  Company Number: PHHY2011IT95683

PATIENT
  Age: 68 Year
  Sex: Female

DRUGS (1)
  1. ALENDRONATE SODIUM [Suspect]
     Indication: HIP FRACTURE
     Route: 065

REACTIONS (5)
  - PAIN [None]
  - FRACTURE NONUNION [None]
  - FEMUR FRACTURE [None]
  - TRAUMATIC FRACTURE [None]
  - IMPAIRED HEALING [None]
